FAERS Safety Report 8591983-7 (Version None)
Quarter: 2012Q3

REPORT INFORMATION
  Report Type: 
  Country: None (occurrence: None)
  Receive Date: 20120814
  Receipt Date: 20120809
  Transmission Date: 20120928
  Serious: Yes (Life-Threatening)
  Sender: FDA-Public Use
  Company Number: US-ASTRAZENECA-1995UW11943

PATIENT
  Age: 30 Year
  Sex: Female

DRUGS (6)
  1. ERYTHROMYCIN [Concomitant]
     Indication: UNEVALUABLE EVENT
  2. ALBUTEROL [Concomitant]
     Indication: ASTHMA
  3. AMINOPHYLLIN [Concomitant]
     Indication: UNEVALUABLE EVENT
  4. OFLOXACIN [Concomitant]
     Indication: UNEVALUABLE EVENT
  5. DIPRIVAN [Suspect]
     Indication: SEDATION
     Dosage: 12 HOURS
     Dates: start: 19950701, end: 19950701
  6. METHYLPREDNISOLONE [Concomitant]
     Indication: UNEVALUABLE EVENT

REACTIONS (1)
  - LACTIC ACIDOSIS [None]
